FAERS Safety Report 12275697 (Version 20)
Quarter: 2019Q3

REPORT INFORMATION
  Report Type: Report from Study
  Country: CA (occurrence: CA)
  Receive Date: 20160418
  Receipt Date: 20190927
  Transmission Date: 20191004
  Serious: Yes (Other)
  Sender: FDA-Public Use
  Company Number: CA-ROCHE-1739678

PATIENT
  Age: 25 Year
  Sex: Female

DRUGS (16)
  1. RITUXAN [Suspect]
     Active Substance: RITUXIMAB
     Indication: GRANULOMATOSIS WITH POLYANGIITIS
     Dosage: LAST DOSE OF RITUXIMAB WAS RECEIVED ON 28/MAR/2019
     Route: 042
     Dates: start: 20160407, end: 20160428
  2. RITUXAN [Suspect]
     Active Substance: RITUXIMAB
     Indication: BRONCHOSTENOSIS
     Dosage: SINGLE DOSE
     Route: 042
     Dates: start: 20180412
  3. BENADRYL [Suspect]
     Active Substance: DIPHENHYDRAMINE HYDROCHLORIDE
     Indication: PRODUCT USED FOR UNKNOWN INDICATION
     Route: 042
  4. METHYLPREDNISOLONE. [Concomitant]
     Active Substance: METHYLPREDNISOLONE
     Indication: PREMEDICATION
     Route: 042
     Dates: start: 20160407
  5. CIPROLEX [Concomitant]
     Active Substance: CIPROFLOXACIN HYDROCHLORIDE
  6. RITUXAN [Suspect]
     Active Substance: RITUXIMAB
     Route: 042
     Dates: start: 20181011
  7. CALCIUM [Concomitant]
     Active Substance: CALCIUM
  8. RITUXAN [Suspect]
     Active Substance: RITUXIMAB
     Indication: TRACHEAL STENOSIS
     Dosage: X 3 CYCLES
     Route: 042
     Dates: start: 20170109
  9. PANTOPRAZOLE [Concomitant]
     Active Substance: PANTOPRAZOLE
  10. VIT D [Concomitant]
     Active Substance: VITAMIN D NOS
  11. DIPHENHYDRAMINE HCL [Concomitant]
     Active Substance: DIPHENHYDRAMINE HYDROCHLORIDE
     Indication: PREMEDICATION
     Route: 048
     Dates: start: 20160407
  12. SEPTRA [Concomitant]
     Active Substance: SULFAMETHOXAZOLE\TRIMETHOPRIM
  13. PREDNISONE. [Concomitant]
     Active Substance: PREDNISONE
     Route: 065
  14. SOLU-CORTEF [Suspect]
     Active Substance: HYDROCORTISONE SODIUM SUCCINATE
     Indication: PRODUCT USED FOR UNKNOWN INDICATION
     Route: 042
  15. GRAVOL [Suspect]
     Active Substance: DIMENHYDRINATE
     Indication: NAUSEA
     Route: 042
  16. ACETAMINOPHEN. [Concomitant]
     Active Substance: ACETAMINOPHEN
     Indication: PREMEDICATION
     Route: 048
     Dates: start: 20160407

REACTIONS (30)
  - Fungal infection [Unknown]
  - Product use in unapproved indication [Unknown]
  - Colitis [Unknown]
  - Nausea [Recovered/Resolved]
  - Heart rate increased [Unknown]
  - Feeling hot [Recovered/Resolved]
  - Nasopharyngitis [Recovered/Resolved]
  - Gastric ulcer [Unknown]
  - Blood glucose decreased [Unknown]
  - Hypersomnia [Unknown]
  - Off label use [Unknown]
  - Somnolence [Unknown]
  - Abdominal discomfort [Recovered/Resolved]
  - Urticaria [Unknown]
  - Infusion related reaction [Recovered/Resolved]
  - Vasculitis [Recovered/Resolved]
  - Kidney infection [Unknown]
  - Infusion related reaction [Unknown]
  - Dizziness [Recovered/Resolved]
  - Pruritus [Recovered/Resolved]
  - Abdominal pain upper [Recovered/Resolved]
  - Body temperature increased [Unknown]
  - Sinusitis [Unknown]
  - Drug ineffective [Unknown]
  - Blood pressure diastolic decreased [Unknown]
  - Heart rate increased [Unknown]
  - Nausea [Recovered/Resolved]
  - Tracheal inflammation [Not Recovered/Not Resolved]
  - Inflammation [Unknown]
  - Blood pressure systolic abnormal [Unknown]

NARRATIVE: CASE EVENT DATE: 20160407
